FAERS Safety Report 5271018-4 (Version None)
Quarter: 2007Q1

REPORT INFORMATION
  Report Type: 
  Country: None (occurrence: None)
  Receive Date: 20061214
  Receipt Date: 20060712
  Transmission Date: 20070707
  Serious: Yes (Other)
  Sender: FDA-Public Use
  Company Number: 2005135484

PATIENT
  Age: 72 Year
  Sex: Female
  Weight: 87.0906 kg

DRUGS (9)
  1. BEXTRA [Suspect]
     Indication: PAIN
  2. METOPROLOL TARTRATE [Concomitant]
  3. FUROSEMIDE [Concomitant]
  4. LIPITOR [Concomitant]
  5. METHOTREXATE [Concomitant]
  6. OXYCONTIN [Concomitant]
  7. HUMALOG [Concomitant]
  8. FOLIC ACID [Concomitant]
  9. RHINOCORT [Concomitant]

REACTIONS (1)
  - MYOCARDIAL INFARCTION [None]
